FAERS Safety Report 14975164 (Version 2)
Quarter: 2018Q2

REPORT INFORMATION
  Report Type: Spontaneous
  Country: ES (occurrence: ES)
  Receive Date: 20180605
  Receipt Date: 20180615
  Transmission Date: 20180711
  Serious: Yes (Other)
  Sender: FDA-Public Use
  Company Number: ES-PFIZER INC-2018164375

PATIENT
  Age: 62 Year
  Sex: Female
  Weight: 91 kg

DRUGS (12)
  1. TOVIAZ [Suspect]
     Active Substance: FESOTERODINE FUMARATE
     Indication: URINARY INCONTINENCE
     Dosage: 8 MG, 1X/DAY
     Route: 048
     Dates: start: 20170215, end: 20180404
  2. ANGIODROX [Concomitant]
     Dosage: 1 TABLET, 2X/DAY
     Dates: start: 20120416
  3. EUTIROX [Concomitant]
     Active Substance: LEVOTHYROXINE SODIUM
     Dosage: 1 TABLET, 1X/DAY
     Dates: start: 20130919
  4. CONDROSAN [Concomitant]
     Dosage: 2 DF, DAILY
     Dates: start: 201712
  5. CONDROSAN [Concomitant]
     Dosage: 2 DF, DAILY
     Dates: start: 201801
  6. CONDROSAN [Concomitant]
     Dosage: 2 DF, DAILY
     Dates: start: 201802
  7. CONDROSAN [Concomitant]
     Dosage: 2 DF, DAILY
     Dates: start: 201703
  8. CONDROSAN [Concomitant]
     Dosage: 2 DF, DAILY
     Dates: start: 201704
  9. PARACETAMOL [Concomitant]
     Active Substance: ACETAMINOPHEN
     Dosage: UNK, AS NEEDED
  10. OMEPRAZOL [Concomitant]
     Active Substance: OMEPRAZOLE
     Dosage: UNK
  11. TELMISARTAN/HCT [Concomitant]
     Active Substance: HYDROCHLOROTHIAZIDE\TELMISARTAN
     Dosage: 1 TABLET, 1X/DAY
     Dates: start: 20170427
  12. LORAZEPAM. [Concomitant]
     Active Substance: LORAZEPAM
     Dosage: 1 TABLET, 1X/DAY (AT NIGHT)
     Dates: start: 20160208

REACTIONS (3)
  - Tooth disorder [Unknown]
  - Tooth loss [Not Recovered/Not Resolved]
  - Tooth fracture [Not Recovered/Not Resolved]

NARRATIVE: CASE EVENT DATE: 20180404
